FAERS Safety Report 7221168-8 (Version None)
Quarter: 2011Q1

REPORT INFORMATION
  Report Type: 
  Country: None (occurrence: None)
  Receive Date: 20110112
  Receipt Date: 20110104
  Transmission Date: 20110831
  Serious: Yes (Hospitalization, Other)
  Sender: FDA-Public Use
  Company Number: US-GENZYME-POMP-1001138

PATIENT
  Sex: Female
  Weight: 55.782 kg

DRUGS (2)
  1. LUMIZYME [Suspect]
     Indication: GLYCOGEN STORAGE DISEASE TYPE II
     Dosage: 1180 MG, Q2W
     Route: 042
     Dates: start: 20061030
  2. ALBUTEROL [Concomitant]
     Dosage: 2 OTHER, UNK
     Route: 055
     Dates: start: 20030101

REACTIONS (3)
  - LUNG CYST [None]
  - DYSPHAGIA [None]
  - PNEUMOTHORAX [None]
